FAERS Safety Report 10045485 (Version 6)
Quarter: 2014Q4

REPORT INFORMATION
  Report Type: Spontaneous
  Country: US (occurrence: US)
  Receive Date: 20140328
  Receipt Date: 20141209
  Transmission Date: 20150528
  Serious: Yes (Hospitalization, Disabling, Other)
  Sender: FDA-Public Use
  Company Number: US-009507513-1403USA011507

PATIENT
  Sex: Male
  Weight: 64.5 kg

DRUGS (1)
  1. PROPECIA [Suspect]
     Active Substance: FINASTERIDE
     Indication: ALOPECIA
     Dosage: 1 MG, QD
     Route: 048
     Dates: start: 20030208, end: 20090930

REACTIONS (27)
  - Benign prostatic hyperplasia [Unknown]
  - Tuberculin test positive [Unknown]
  - Surgery [Not Recovered/Not Resolved]
  - Pancreatic carcinoma metastatic [Unknown]
  - Hyperhidrosis [Unknown]
  - Jaw operation [Unknown]
  - Sexual dysfunction [Not Recovered/Not Resolved]
  - Prostate cancer [Unknown]
  - Metastases to gastrointestinal tract [Unknown]
  - Lymphadenectomy [Unknown]
  - Radical prostatectomy [Unknown]
  - Metastases to liver [Unknown]
  - Gastrointestinal disorder [Unknown]
  - Abdominal pain [Unknown]
  - Bone disorder [Unknown]
  - Constipation [Unknown]
  - Epididymal cyst [Unknown]
  - Biliary cancer metastatic [Unknown]
  - Fatigue [Unknown]
  - Abdominal pain [Unknown]
  - Sinus operation [Unknown]
  - Arthroscopic surgery [Unknown]
  - Knee operation [Unknown]
  - Erectile dysfunction [Not Recovered/Not Resolved]
  - Stress urinary incontinence [Unknown]
  - Bladder outlet obstruction [Unknown]
  - Nasal operation [Unknown]

NARRATIVE: CASE EVENT DATE: 2009
